FAERS Safety Report 7719674-2 (Version None)
Quarter: 2011Q3

REPORT INFORMATION
  Report Type: 
  Country: None (occurrence: None)
  Receive Date: 20110830
  Receipt Date: 20110825
  Transmission Date: 20111222
  Serious: Yes (Other)
  Sender: FDA-Public Use
  Company Number: SE-AMGEN-SWESP2011043951

PATIENT
  Age: 75 Year
  Sex: Female
  Weight: 64 kg

DRUGS (5)
  1. MODURETIC 5-50 [Concomitant]
  2. PROLIA [Suspect]
     Indication: PRODUCT USED FOR UNKNOWN INDICATION
     Dosage: UNK
     Dates: start: 20110501
  3. OMEPRAZOLE [Concomitant]
  4. BISOPROLOL FUMARATE [Concomitant]
  5. LEVOTHYROXINE SODIUM [Concomitant]
     Dosage: 125 MUG, UNK

REACTIONS (5)
  - ABDOMINAL PAIN UPPER [None]
  - NAUSEA [None]
  - EYE PAIN [None]
  - BURNING SENSATION MUCOSAL [None]
  - RHINORRHOEA [None]
